FAERS Safety Report 8964982 (Version 2)
Quarter: 2012Q4

REPORT INFORMATION
  Report Type: 
  Country: DE (occurrence: DE)
  Receive Date: 20121213
  Receipt Date: 20121217
  Transmission Date: 20130627
  Serious: Yes (Death)
  Sender: FDA-Public Use
  Company Number: DE-ROCHE-1167435

PATIENT

DRUGS (2)
  1. ALTEPLASE [Suspect]
     Indication: THROMBOLYSIS
     Dosage: within 3 hours after stroke onset
     Route: 040
  2. TIROFIBAN [Suspect]
     Indication: THROMBOLYSIS
     Route: 042

REACTIONS (2)
  - Haemorrhage intracranial [Fatal]
  - Cerebral infarction [Fatal]
